FAERS Safety Report 25625173 (Version 2)
Quarter: 2025Q3

REPORT INFORMATION
  Report Type: Spontaneous
  Country: US (occurrence: US)
  Receive Date: 20250731
  Receipt Date: 20250915
  Transmission Date: 20251021
  Serious: No
  Sender: TOLMAR
  Company Number: US-Tolmar-TLM-2025-04307

PATIENT
  Sex: Male

DRUGS (6)
  1. ELIGARD [Suspect]
     Active Substance: LEUPROLIDE ACETATE
     Indication: Prostate cancer
  2. ELIGARD [Suspect]
     Active Substance: LEUPROLIDE ACETATE
     Indication: B-cell lymphoma
  3. ELIGARD [Suspect]
     Active Substance: LEUPROLIDE ACETATE
     Indication: Myelodysplastic syndrome
  4. DEVICE [Suspect]
     Active Substance: DEVICE
     Indication: Prostate cancer
  5. DEVICE [Suspect]
     Active Substance: DEVICE
     Indication: B-cell lymphoma
  6. DEVICE [Suspect]
     Active Substance: DEVICE
     Indication: Myelodysplastic syndrome

REACTIONS (6)
  - Wrong technique in product usage process [Unknown]
  - Intercepted product preparation error [Unknown]
  - Device leakage [Unknown]
  - Device defective [Unknown]
  - Off label use [Unknown]
  - Product quality issue [Unknown]
